FAERS Safety Report 15010345 (Version 1)
Quarter: 2018Q2

REPORT INFORMATION
  Report Type: Spontaneous
  Country: US (occurrence: US)
  Receive Date: 20180528
  Receipt Date: 20180528
  Transmission Date: 20180711
  Serious: Yes (Other)
  Sender: FDA-Public Use
  Company Number: None

PATIENT
  Age: 64 Year
  Sex: Female
  Weight: 63 kg

DRUGS (3)
  1. LEXAPRO [Concomitant]
     Active Substance: ESCITALOPRAM OXALATE
  2. MS CONTIN [Concomitant]
     Active Substance: MORPHINE SULFATE
  3. MAXIMUM STRENTH NASAL [Suspect]
     Active Substance: OXYMETAZOLINE HYDROCHLORIDE
     Indication: SINUS CONGESTION
     Dosage: ?          OTHER FREQUENCY:2-3 DAY;?
     Route: 055
     Dates: start: 20180528, end: 20180528

REACTIONS (4)
  - Burning sensation [None]
  - Sinus disorder [None]
  - Headache [None]
  - Product label issue [None]

NARRATIVE: CASE EVENT DATE: 20180528
